FAERS Safety Report 8585985-4 (Version None)
Quarter: 2012Q3

REPORT INFORMATION
  Report Type: 
  Country: None (occurrence: None)
  Receive Date: 20120810
  Receipt Date: 20120802
  Transmission Date: 20120928
  Serious: Yes (Hospitalization)
  Sender: FDA-Public Use
  Company Number: US-ACTELION-A-US2012-69687

PATIENT
  Age: 26 Year
  Sex: Female

DRUGS (1)
  1. TRACLEER [Suspect]
     Indication: PULMONARY ARTERIAL HYPERTENSION
     Dosage: UNK
     Route: 048
     Dates: start: 20061005

REACTIONS (4)
  - WHEEZING [None]
  - PNEUMONIA [None]
  - OXYGEN SATURATION DECREASED [None]
  - FLUID OVERLOAD [None]
